FAERS Safety Report 19104593 (Version 3)
Quarter: 2025Q3

REPORT INFORMATION
  Report Type: Report from Study
  Country: CA (occurrence: CA)
  Receive Date: 20210407
  Receipt Date: 20250813
  Transmission Date: 20251021
  Serious: Yes (Other)
  Sender: TAKEDA
  Company Number: CA-TAKEDA-2021TUS020614

PATIENT
  Sex: Female

DRUGS (12)
  1. VEDOLIZUMAB [Suspect]
     Active Substance: VEDOLIZUMAB
     Indication: Colitis ulcerative
  2. VEDOLIZUMAB [Suspect]
     Active Substance: VEDOLIZUMAB
  3. VEDOLIZUMAB [Suspect]
     Active Substance: VEDOLIZUMAB
  4. Salofalk [Concomitant]
  5. PERINDOPRIL [Concomitant]
     Active Substance: PERINDOPRIL
  6. Reactine [Concomitant]
  7. TRAZODONE [Concomitant]
     Active Substance: TRAZODONE HYDROCHLORIDE
  8. RESTORIL [Concomitant]
     Active Substance: TEMAZEPAM
  9. CLONAZEPAM [Concomitant]
     Active Substance: CLONAZEPAM
  10. CLONIDINE [Concomitant]
     Active Substance: CLONIDINE
  11. CALCIUM [Concomitant]
     Active Substance: CALCIUM
  12. VITAMIN D [Concomitant]
     Active Substance: VITAMIN D NOS

REACTIONS (3)
  - Osteomyelitis [Unknown]
  - Cystitis [Unknown]
  - Urinary tract infection [Recovered/Resolved]
